FAERS Safety Report 6882593-8 (Version None)
Quarter: 2010Q3

REPORT INFORMATION
  Report Type: 
  Country: None (occurrence: None)
  Receive Date: 20100701
  Receipt Date: 20100427
  Transmission Date: 20110219
  Serious: Yes (Hospitalization)
  Sender: FDA-Public Use
  Company Number: SPV1-2010-00704

PATIENT
  Sex: Male
  Weight: 65.8 kg

DRUGS (3)
  1. PENTASA [Suspect]
     Indication: CROHN'S DISEASE
     Dosage: 1 G DAILY, ORAL
     Route: 048
     Dates: start: 20070101
  2. TUMS /00108001/ (CALCIUM CARBONATE) TABLET [Concomitant]
  3. FERROUS GLUCONATE (FERROUS GLUCONATE) TABLET [Concomitant]

REACTIONS (6)
  - ANXIETY DISORDER [None]
  - CROHN'S DISEASE [None]
  - OFF LABEL USE [None]
  - PRODUCT QUALITY ISSUE [None]
  - PRODUCT TASTE ABNORMAL [None]
  - VOMITING [None]
